FAERS Safety Report 5011601-4 (Version None)
Quarter: 2006Q2

REPORT INFORMATION
  Report Type: 
  Country: None (occurrence: None)
  Receive Date: 20060404
  Receipt Date: 20051105
  Transmission Date: 20061013
  Serious: No
  Sender: FDA-Public Use
  Company Number: USA0511112784

PATIENT
  Age: 73 Year
  Sex: Female
  Weight: 45.5 kg

DRUGS (8)
  1. FORTEO [Suspect]
     Indication: OSTEOPOROSIS
     Dates: start: 20040201
  2. CYMBALTA [Suspect]
     Indication: ARTHRALGIA
     Dates: start: 20050501, end: 20051001
  3. NORVASC [Concomitant]
  4. MICARDIS [Concomitant]
  5. TENEX [Concomitant]
  6. OCUVITE [Concomitant]
  7. CALCIUM GLUCONATE [Concomitant]
  8. FORTEO PEN,250MCG/ML (3ML) (FORTEO PEN 250MCG/ML (3ML)) PEN,DISPOSABLE [Concomitant]

REACTIONS (5)
  - ARTHRALGIA [None]
  - DRUG WITHDRAWAL SYNDROME [None]
  - FATIGUE [None]
  - FEELING ABNORMAL [None]
  - HOT FLUSH [None]
